FAERS Safety Report 5581377-0 (Version None)
Quarter: 2008Q1

REPORT INFORMATION
  Report Type: 
  Country: None (occurrence: None)
  Receive Date: 20080104
  Receipt Date: 20071027
  Transmission Date: 20080703
  Serious: No
  Sender: FDA-Public Use
  Company Number: US-BAYER-US-2007-041111

PATIENT
  Age: 48 Year
  Sex: Female

DRUGS (3)
  1. YAZ [Suspect]
     Indication: DRUG USE FOR UNKNOWN INDICATION
     Dates: start: 20070824
  2. PROGESTERONE CREAMS (ALL NATURAL) [Concomitant]
     Indication: DRUG USE FOR UNKNOWN INDICATION
     Route: 061
  3. PHYTOESTROGEN [Concomitant]
     Indication: DRUG USE FOR UNKNOWN INDICATION
     Route: 048

REACTIONS (3)
  - HAEMORRHAGE [None]
  - MENSTRUATION IRREGULAR [None]
  - METRORRHAGIA [None]
